APPROVED DRUG PRODUCT: MEPERIDINE HYDROCHLORIDE
Active Ingredient: MEPERIDINE HYDROCHLORIDE
Strength: 25MG/ML
Dosage Form/Route: INJECTABLE;INJECTION
Application: A080388 | Product #001
Applicant: ABBOTT LABORATORIES PHARMACEUTICAL PRODUCTS DIV
Approved: Approved Prior to Jan 1, 1982 | RLD: No | RS: No | Type: DISCN